FAERS Safety Report 8256427-3 (Version None)
Quarter: 2012Q2

REPORT INFORMATION
  Report Type: 
  Country: None (occurrence: None)
  Receive Date: 20120403
  Receipt Date: 20120328
  Transmission Date: 20120825
  Serious: Yes (Hospitalization, Other)
  Sender: FDA-Public Use
  Company Number: US-PFIZER INC-2012079739

PATIENT
  Sex: Female
  Weight: 118 kg

DRUGS (17)
  1. LYRICA [Suspect]
     Indication: FIBROMYALGIA
     Dosage: 75 MG, DAILY
     Route: 048
     Dates: start: 20110901
  2. MULTI-VITAMINS [Concomitant]
     Dosage: UNK, DAILY
  3. METOPROLOL [Concomitant]
     Dosage: 25 MG, DAILY
  4. CITALOPRAM [Concomitant]
     Dosage: 40 MG, DAILY
  5. TRIAMTERENE AND HYDROCHLOROTHIAZIDE [Suspect]
     Dosage: 50/75MG, DAILY
     Dates: start: 20120301
  6. ROPINIROLE [Concomitant]
     Dosage: 1 MG, DAILY AT BEDTIME
  7. ASCORBIC ACID [Concomitant]
     Dosage: 1000 MG, DAILY
  8. ALPRAZOLAM [Concomitant]
     Dosage: 0.25 MG, 2X/DAY
  9. CYCLOBENZAPRINE [Concomitant]
     Dosage: 10 MG, 2X/DAY
  10. LYRICA [Suspect]
     Indication: MUSCULOSKELETAL DISCOMFORT
  11. VITAMIN D [Concomitant]
     Dosage: 5000MG DAILY ON ONE DAY AND 10000MG DAILY ON THE NEXT DAY
  12. OMEPRAZOLE [Concomitant]
     Dosage: 20 MG, DAILY
  13. METOCLOPRAMIDE [Concomitant]
     Dosage: 5 MG, 4X/DAY
  14. TRIAMTERENE AND HYDROCHLOROTHIAZIDE [Suspect]
     Dosage: 25/37.5MG, DAILY
     Dates: end: 20120301
  15. ACETYLSALICYLIC ACID [Concomitant]
     Dosage: 81 MG, DAILY
  16. LORATADINE [Concomitant]
     Dosage: 10 MG, DAILY
  17. OXYCODONE HYDROCHLORIDE [Concomitant]
     Dosage: 15 MG, 3X/DAY

REACTIONS (8)
  - CARPAL TUNNEL SYNDROME [None]
  - OEDEMA PERIPHERAL [None]
  - RASH PAPULAR [None]
  - ROTATOR CUFF SYNDROME [None]
  - BURNING SENSATION [None]
  - JOINT INJURY [None]
  - MUSCULOSKELETAL PAIN [None]
  - WEIGHT DECREASED [None]
